FAERS Safety Report 4915709-0 (Version None)
Quarter: 2006Q1

REPORT INFORMATION
  Report Type: 
  Country: None (occurrence: None)
  Receive Date: 20060214
  Receipt Date: 20060203
  Transmission Date: 20060701
  Serious: Yes (Other)
  Sender: FDA-Public Use
  Company Number: 2006012182

PATIENT
  Age: 86 Year
  Sex: Female
  Weight: 61.2356 kg

DRUGS (14)
  1. ZOLOFT [Suspect]
     Indication: ANXIETY
     Dosage: 50 MG (1 D)
  2. LYRICA [Suspect]
     Indication: HYPOAESTHESIA
  3. NEURONTIN [Suspect]
     Indication: HYPOAESTHESIA
  4. NEURONTIN [Suspect]
     Indication: PAIN
  5. ALL OTHER THERAPEUTIC PRODUCTS (ALL OTHER THERAPEUTIC PRODUCTS) [Suspect]
     Indication: ANXIETY
     Dates: start: 20050101
  6. ALL OTHER THERAPEUTIC PRODUCTS (ALL OTHER THERAPEUTIC PRODUCTS) [Suspect]
     Indication: BACK PAIN
     Dates: start: 20050101
  7. ANTIDEPRESSANTS (ANTIDEPRESSANTS) [Suspect]
     Indication: ILL-DEFINED DISORDER
  8. VITAMINS (VITAMINS) [Concomitant]
  9. MINERALS NOS (MINERALS NOS) [Concomitant]
  10. VITAMIN D [Concomitant]
  11. MINERALS NOS (MINERALS NOS) [Concomitant]
  12. VITAMIN D [Concomitant]
  13. VITAMIN B NOS (VITAMIN B NOS) [Concomitant]
  14. MULTIVITAMIN [Concomitant]

REACTIONS (14)
  - ABASIA [None]
  - ARTHRITIS [None]
  - BACK PAIN [None]
  - BLADDER PROLAPSE [None]
  - BODY HEIGHT DECREASED [None]
  - EXOSTOSIS [None]
  - HYPOAESTHESIA [None]
  - INCREASED TENDENCY TO BRUISE [None]
  - INTERVERTEBRAL DISC DISORDER [None]
  - INTESTINAL PROLAPSE [None]
  - KNEE ARTHROPLASTY [None]
  - MUSCULOSKELETAL STIFFNESS [None]
  - THERAPY NON-RESPONDER [None]
  - VISION BLURRED [None]
